FAERS Safety Report 24238901 (Version 3)
Quarter: 2024Q3

REPORT INFORMATION
  Report Type: Spontaneous
  Country: ZA (occurrence: ZA)
  Receive Date: 20240822
  Receipt Date: 20240830
  Transmission Date: 20241017
  Serious: Yes (Hospitalization, Other)
  Sender: PFIZER
  Company Number: ZA-PFIZER INC-PV202400109046

PATIENT
  Sex: Male

DRUGS (3)
  1. ATGAM [Suspect]
     Active Substance: EQUINE THYMOCYTE IMMUNE GLOBULIN
     Dosage: UNK
     Dates: start: 201406
  2. CYCLOSPORINE [Suspect]
     Active Substance: CYCLOSPORINE
     Dosage: UNK
  3. CORTISONE [Concomitant]
     Active Substance: CORTISONE

REACTIONS (21)
  - Pain [Unknown]
  - Neoplasm malignant [Unknown]
  - Metal poisoning [Unknown]
  - Epilepsy [Unknown]
  - Abdominal pain upper [Unknown]
  - Renal pain [Unknown]
  - Headache [Unknown]
  - Balance disorder [Unknown]
  - Confusional state [Unknown]
  - Peripheral swelling [Unknown]
  - Chest pain [Unknown]
  - Night sweats [Unknown]
  - Arthralgia [Unknown]
  - Arthralgia [Unknown]
  - Neck pain [Unknown]
  - Hypertension [Unknown]
  - Back pain [Unknown]
  - Anaemia [Unknown]
  - Blood zinc decreased [Unknown]
  - Investigation abnormal [Unknown]
  - Gait inability [Unknown]

NARRATIVE: CASE EVENT DATE: 20190101
